FAERS Safety Report 6194119-5 (Version None)
Quarter: 2009Q2

REPORT INFORMATION
  Report Type: 
  Country: None (occurrence: None)
  Receive Date: 20090518
  Receipt Date: 20090508
  Transmission Date: 20091009
  Serious: Yes (Other)
  Sender: FDA-Public Use
  Company Number: PHEH2009US04621

PATIENT
  Sex: Female

DRUGS (2)
  1. RITALIN [Suspect]
  2. LUVOX [Concomitant]
     Indication: OBSESSIVE-COMPULSIVE DISORDER

REACTIONS (3)
  - CYANOSIS [None]
  - LABELLED DRUG-DRUG INTERACTION MEDICATION ERROR [None]
  - OBSESSIVE-COMPULSIVE DISORDER [None]
